FAERS Safety Report 5371750-8 (Version None)
Quarter: 2007Q2

REPORT INFORMATION
  Report Type: 
  Country: None (occurrence: None)
  Receive Date: 20070625
  Receipt Date: 20070618
  Transmission Date: 20071010
  Serious: Yes (Hospitalization)
  Sender: FDA-Public Use
  Company Number: 2007AL002446

PATIENT
  Age: 11 Year
  Sex: Female

DRUGS (1)
  1. CLONIDINE HCL [Suspect]
     Indication: BLOOD GROWTH HORMONE
     Dosage: 0.11 MG; X1

REACTIONS (14)
  - AKATHISIA [None]
  - ANAL SPHINCTER ATONY [None]
  - DYSARTHRIA [None]
  - HALLUCINATION [None]
  - HYPERTONIA [None]
  - LOSS OF CONSCIOUSNESS [None]
  - PALLOR [None]
  - PARAESTHESIA [None]
  - PROCEDURAL COMPLICATION [None]
  - PROCEDURAL HYPOTENSION [None]
  - PSYCHOMOTOR HYPERACTIVITY [None]
  - SOMNOLENCE [None]
  - SYNCOPE [None]
  - TETANY [None]
